FAERS Safety Report 12095110 (Version 1)
Quarter: 2016Q1

REPORT INFORMATION
  Report Type: Spontaneous
  Country: US (occurrence: US)
  Receive Date: 20160219
  Receipt Date: 20160219
  Transmission Date: 20160526
  Serious: No
  Sender: FDA-Public Use
  Company Number: US-APOTEX-2015AP011563

PATIENT
  Sex: Female

DRUGS (1)
  1. METFORMIN HYDROCHLORIDE. [Suspect]
     Active Substance: METFORMIN HYDROCHLORIDE
     Indication: BLOOD GLUCOSE INCREASED
     Dosage: 5 CAPSULES DAILY
     Route: 065

REACTIONS (3)
  - Drug ineffective [Recovered/Resolved]
  - Medication residue present [Recovered/Resolved]
  - Product substitution issue [Recovered/Resolved]
